FAERS Safety Report 23774237 (Version 1)
Quarter: 2024Q2

REPORT INFORMATION
  Report Type: Report from Study
  Country: US (occurrence: None)
  Receive Date: 20240423
  Receipt Date: 20240423
  Transmission Date: 20240716
  Serious: Yes (Other)
  Sender: FDA-Public Use
  Company Number: 2024A091098

PATIENT
  Sex: Male
  Weight: 80.7 kg

DRUGS (1)
  1. CALQUENCE [Suspect]
     Active Substance: ACALABRUTINIB
     Indication: Chronic lymphocytic leukaemia
     Dosage: 100.0MG UNKNOWN
     Route: 048

REACTIONS (4)
  - Hernia [Not Recovered/Not Resolved]
  - Fatigue [Recovering/Resolving]
  - Asthenia [Unknown]
  - Decreased activity [Unknown]
